FAERS Safety Report 10177997 (Version 1)
Quarter: 2014Q2

REPORT INFORMATION
  Report Type: Spontaneous
  Country: GB (occurrence: GB)
  Receive Date: 20140516
  Receipt Date: 20140516
  Transmission Date: 20141212
  Serious: Yes (Other)
  Sender: FDA-Public Use
  Company Number: GB-ABBVIE-14P-167-1238129-00

PATIENT
  Sex: 0

DRUGS (1)
  1. HUMIRA [Suspect]
     Indication: PRODUCT USED FOR UNKNOWN INDICATION

REACTIONS (7)
  - Depression [Unknown]
  - Skin cancer [Unknown]
  - Insomnia [Unknown]
  - Migraine [Unknown]
  - Vertigo [Unknown]
  - Gastrointestinal haemorrhage [Unknown]
  - Alopecia [Unknown]
